FAERS Safety Report 25658983 (Version 1)
Quarter: 2025Q3

REPORT INFORMATION
  Report Type: Spontaneous
  Country: GB (occurrence: GB)
  Receive Date: 20250808
  Receipt Date: 20250808
  Transmission Date: 20251020
  Serious: Yes (Other)
  Sender: MYLAN
  Company Number: None

PATIENT
  Age: 69 Year
  Sex: Female
  Weight: 55 kg

DRUGS (12)
  1. ATORVASTATIN [Suspect]
     Active Substance: ATORVASTATIN
     Indication: Blood cholesterol increased
     Route: 065
     Dates: start: 20241101, end: 20250707
  2. ATORVASTATIN [Suspect]
     Active Substance: ATORVASTATIN
     Dates: start: 20241101, end: 20250707
  3. ATORVASTATIN [Suspect]
     Active Substance: ATORVASTATIN
     Dates: start: 20241101, end: 20250707
  4. ATORVASTATIN [Suspect]
     Active Substance: ATORVASTATIN
     Route: 065
     Dates: start: 20241101, end: 20250707
  5. ATORVASTATIN [Suspect]
     Active Substance: ATORVASTATIN
     Route: 065
  6. ATORVASTATIN [Suspect]
     Active Substance: ATORVASTATIN
  7. ATORVASTATIN [Suspect]
     Active Substance: ATORVASTATIN
  8. ATORVASTATIN [Suspect]
     Active Substance: ATORVASTATIN
     Route: 065
  9. RAMIPRIL [Concomitant]
     Active Substance: RAMIPRIL
     Indication: Blood pressure management
  10. RAMIPRIL [Concomitant]
     Active Substance: RAMIPRIL
     Route: 065
  11. RAMIPRIL [Concomitant]
     Active Substance: RAMIPRIL
     Route: 065
  12. RAMIPRIL [Concomitant]
     Active Substance: RAMIPRIL

REACTIONS (2)
  - Myalgia [Recovered/Resolved]
  - Medication error [Unknown]

NARRATIVE: CASE EVENT DATE: 20250530
